FAERS Safety Report 5283256-5 (Version None)
Quarter: 2007Q2

REPORT INFORMATION
  Report Type: 
  Country: None (occurrence: None)
  Receive Date: 20070402
  Receipt Date: 20070319
  Transmission Date: 20071010
  Serious: Yes (Hospitalization, Other)
  Sender: FDA-Public Use
  Company Number: PHEH2007US00822

PATIENT
  Age: 31 Year
  Sex: Female
  Weight: 153.74 kg

DRUGS (3)
  1. GLEEVEC [Suspect]
     Indication: CHRONIC MYELOID LEUKAEMIA
     Dosage: UNK, QD
     Route: 048
     Dates: end: 20061201
  2. GLEEVEC [Suspect]
     Dosage: UNK, QOD
     Route: 048
  3. LASIX [Concomitant]
     Dosage: UNK, PRN
     Route: 048

REACTIONS (3)
  - DRUG EXPOSURE DURING PREGNANCY [None]
  - INTRA-UTERINE DEATH [None]
  - MULTIPLE PREGNANCY [None]
